FAERS Safety Report 5715797-8 (Version None)
Quarter: 2008Q2

REPORT INFORMATION
  Report Type: 
  Country: None (occurrence: None)
  Receive Date: 20080422
  Receipt Date: 20080407
  Transmission Date: 20081010
  Serious: Yes (Other)
  Sender: FDA-Public Use
  Company Number: 2008031555

PATIENT
  Sex: Female
  Weight: 53 kg

DRUGS (2)
  1. FRAGMIN [Suspect]
     Indication: PROPHYLAXIS OF ABORTION
     Dosage: 2005 I.U. (2500 I.U., 1 IN 1 D)
     Dates: start: 20070901
  2. ALL OTHER THERAPEUTIC PRODUCTS (ALL OTHER THERAPEUTIC PRODUCTS) [Concomitant]

REACTIONS (3)
  - ABORTION [None]
  - APPLICATION SITE DISCOLOURATION [None]
  - DRUG EXPOSURE DURING PREGNANCY [None]
